FAERS Safety Report 17102251 (Version 1)
Quarter: 2019Q4

REPORT INFORMATION
  Report Type: Spontaneous
  Country: US (occurrence: US)
  Receive Date: 20191202
  Receipt Date: 20191202
  Transmission Date: 20200122
  Serious: Yes (Other)
  Sender: FDA-Public Use
  Company Number: US-JNJFOC-20191133253

PATIENT
  Sex: Male
  Weight: 89 kg

DRUGS (1)
  1. INVEGA SUSTENNA [Suspect]
     Active Substance: PALIPERIDONE PALMITATE
     Indication: PRODUCT USED FOR UNKNOWN INDICATION
     Dosage: NDC: 5045856401
     Route: 030

REACTIONS (3)
  - Hepatitis C [Unknown]
  - Inappropriate schedule of product administration [Unknown]
  - Off label use [Unknown]
